FAERS Safety Report 10226656 (Version 1)
Quarter: 2014Q2

REPORT INFORMATION
  Report Type: Spontaneous
  Country: NZ (occurrence: NZ)
  Receive Date: 20140609
  Receipt Date: 20140609
  Transmission Date: 20141212
  Serious: Yes (Other)
  Sender: FDA-Public Use
  Company Number: NZ-ABBVIE-14P-118-1243266-00

PATIENT
  Sex: Female

DRUGS (2)
  1. HUMIRA [Suspect]
     Indication: CROHN^S DISEASE
  2. HUMIRA [Suspect]

REACTIONS (7)
  - Rheumatoid arthritis [Unknown]
  - Dermatitis [Unknown]
  - Psoriasis [Unknown]
  - Arthralgia [Recovering/Resolving]
  - Pain in extremity [Unknown]
  - Peripheral swelling [Unknown]
  - Cellulitis [Unknown]
